FAERS Safety Report 7538895-5 (Version None)
Quarter: 2011Q2

REPORT INFORMATION
  Report Type: 
  Country: None (occurrence: None)
  Receive Date: 20110610
  Receipt Date: 20110526
  Transmission Date: 20111010
  Serious: Yes (Other)
  Sender: FDA-Public Use
  Company Number: GB-JNJFOC-20110512919

PATIENT
  Age: 36 Year
  Sex: Female

DRUGS (3)
  1. REMICADE [Suspect]
     Indication: PSORIASIS
     Route: 042
  2. HUMIRA [Suspect]
     Indication: PSORIASIS
     Dates: start: 20091101, end: 20100101
  3. ETANERCEPT [Suspect]
     Indication: PSORIASIS
     Dates: start: 20090601, end: 20091001

REACTIONS (1)
  - LUPUS-LIKE SYNDROME [None]
